FAERS Safety Report 5467608-6 (Version None)
Quarter: 2007Q3

REPORT INFORMATION
  Report Type: 
  Country: None (occurrence: None)
  Receive Date: 20070921
  Receipt Date: 20070910
  Transmission Date: 20080115
  Serious: Yes (Hospitalization)
  Sender: FDA-Public Use
  Company Number: 2007-04172

PATIENT
  Age: 81 Year
  Sex: Male

DRUGS (4)
  1. HYDROCODONE BITARTRATE/ACETAMINOPHEN 5/500 (WATSON LABORATORIES)(ACETA [Suspect]
     Indication: PAIN
     Dosage: 0.5 TABLET, Q6H, ORAL
     Route: 048
     Dates: start: 20070904, end: 20070909
  2. HYDROCODONE BITARTRATE/ACETAMINOPHEN 5/500 (WATSON LABORATORIES)(ACETA [Suspect]
     Indication: PAIN
     Dosage: 0.5 TABLET, Q6H, ORAL
     Route: 048
     Dates: start: 20070910
  3. OXYCODONE HYDROCHLORIDE [Suspect]
     Dosage: ORAL
     Route: 048
     Dates: start: 20070827, end: 20070903
  4. VERAPAMIL [Concomitant]

REACTIONS (2)
  - BALANCE DISORDER [None]
  - CARDIAC FAILURE CONGESTIVE [None]
